FAERS Safety Report 8402185-9 (Version None)
Quarter: 2012Q2

REPORT INFORMATION
  Report Type: 
  Country: None (occurrence: None)
  Receive Date: 20120601
  Receipt Date: 20120531
  Transmission Date: 20120825
  Serious: Yes (Other)
  Sender: FDA-Public Use
  Company Number: DK-BAYER-2012-053582

PATIENT
  Sex: Female

DRUGS (3)
  1. MIRENA [Suspect]
     Indication: VAGINAL HAEMORRHAGE
     Dosage: 20 MCG/24HR, CONT
     Route: 015
     Dates: start: 20111208, end: 20120508
  2. CYKLOKAPRON [Concomitant]
     Indication: MENORRHAGIA
     Dosage: 500 MG, TID
  3. MIRENA [Suspect]
     Indication: MENORRHAGIA
     Dosage: 20 MCG/24HR, CONT
     Route: 015
     Dates: start: 20111115, end: 20111208

REACTIONS (3)
  - VAGINAL HAEMORRHAGE [None]
  - UTERINE POLYP [None]
  - UTERINE LEIOMYOMA [None]
